FAERS Safety Report 6793994-0 (Version None)
Quarter: 2010Q2

REPORT INFORMATION
  Report Type: 
  Country: None (occurrence: None)
  Receive Date: 20100624
  Receipt Date: 20070716
  Transmission Date: 20101027
  Serious: No
  Sender: FDA-Public Use
  Company Number: US-PFIZER INC-ENC200700109

PATIENT
  Age: 61 Year
  Sex: Female

DRUGS (13)
  1. ARGATROBAN [Suspect]
     Indication: HEPARIN-INDUCED THROMBOCYTOPENIA
     Dosage: 2 MCG/KG/MIN,FREQUENCY:  UNK
     Route: 042
     Dates: start: 20070713
  2. ALLOPURINOL [Concomitant]
  3. ASCORBIC ACID [Concomitant]
  4. ACETYLSALICYLIC ACID [Concomitant]
  5. CASPOFUNGIN ACETATE [Concomitant]
  6. CEFTRIAXONE [Concomitant]
  7. CITALOPRAM [Concomitant]
  8. EPOETIN ALFA [Concomitant]
  9. ERYTHROMYCIN [Concomitant]
  10. VICODIN [Concomitant]
  11. HYDROMORPHONE HYDROCHLORIDE [Concomitant]
  12. MIDORIN [Concomitant]
  13. LEVOTHYROXINE SODIUM [Concomitant]

REACTIONS (1)
  - COAGULATION TIME PROLONGED [None]
